FAERS Safety Report 5564777-4 (Version None)
Quarter: 2007Q4

REPORT INFORMATION
  Report Type: 
  Country: None (occurrence: None)
  Receive Date: 20071213
  Receipt Date: 20071213
  Transmission Date: 20080405
  Serious: Yes (Other)
  Sender: FDA-Public Use
  Company Number: None

PATIENT
  Age: 37 Year
  Sex: Female
  Weight: 57.1532 kg

DRUGS (2)
  1. ZOLOFT [Suspect]
     Indication: ANXIETY
     Dosage: 50MG  QD  PO
     Route: 048
     Dates: start: 20031201, end: 20071201
  2. ZOLOFT [Suspect]
     Indication: DEPRESSION
     Dosage: 50MG  QD  PO
     Route: 048
     Dates: start: 20031201, end: 20071201

REACTIONS (7)
  - CHILLS [None]
  - DEPRESSION [None]
  - DIZZINESS [None]
  - DRUG WITHDRAWAL SYNDROME [None]
  - ILL-DEFINED DISORDER [None]
  - PAIN [None]
  - PYREXIA [None]
